FAERS Safety Report 19189684 (Version 1)
Quarter: 2021Q2

REPORT INFORMATION
  Report Type: Spontaneous
  Country: US (occurrence: US)
  Receive Date: 20210428
  Receipt Date: 20210428
  Transmission Date: 20210717
  Serious: Yes (Hospitalization)
  Sender: FDA-Public Use
  Company Number: None

PATIENT
  Age: 66 Year
  Sex: Male

DRUGS (8)
  1. XOLAIR [Suspect]
     Active Substance: OMALIZUMAB
     Indication: ASTHMA
     Route: 058
     Dates: start: 20180515
  2. B?1 [Concomitant]
  3. MONTELUKAST [Concomitant]
     Active Substance: MONTELUKAST SODIUM
  4. NAPROXEN. [Concomitant]
     Active Substance: NAPROXEN
  5. PANTOPRAZOLE [Concomitant]
     Active Substance: PANTOPRAZOLE
  6. ATOVASTATIN [Concomitant]
     Active Substance: ATORVASTATIN
  7. FAMOTIDINE. [Concomitant]
     Active Substance: FAMOTIDINE
  8. PREDNISONE. [Concomitant]
     Active Substance: PREDNISONE

REACTIONS (1)
  - Asthma [None]

NARRATIVE: CASE EVENT DATE: 20210421
